FAERS Safety Report 10632936 (Version 2)
Quarter: 2015Q1

REPORT INFORMATION
  Report Type: Spontaneous
  Country: US (occurrence: US)
  Receive Date: 20141205
  Receipt Date: 20150203
  Transmission Date: 20150720
  Serious: No
  Sender: FDA-Public Use
  Company Number: US-BRISTOL-MYERS SQUIBB COMPANY-21623079

PATIENT
  Sex: Female

DRUGS (1)
  1. SPRYCEL [Suspect]
     Active Substance: DASATINIB
     Indication: CHRONIC MYELOID LEUKAEMIA
     Dosage: INTERUPTED FOR 1 MONTH  RESTARTED ON 20MG
     Route: 065

REACTIONS (4)
  - Migraine [Unknown]
  - Muscle spasms [Unknown]
  - Cytopenia [Unknown]
  - Nausea [Unknown]

NARRATIVE: CASE EVENT DATE: 2014
